FAERS Safety Report 5040333-1 (Version None)
Quarter: 2006Q2

REPORT INFORMATION
  Report Type: 
  Country: None (occurrence: None)
  Receive Date: 20060630
  Receipt Date: 20060525
  Transmission Date: 20061013
  Serious: No
  Sender: FDA-Public Use
  Company Number: US-BRISTOL-MYERS SQUIBB COMPANY-13390331

PATIENT
  Age: 64 Year
  Sex: Male
  Weight: 102 kg

DRUGS (12)
  1. ORENCIA [Suspect]
     Indication: RHEUMATOID ARTHRITIS
     Route: 042
     Dates: start: 20060523
  2. HYDROCHLOROTHIAZIDE [Concomitant]
  3. HYDROCODONE [Concomitant]
  4. FLOMAX [Concomitant]
  5. CYTOTEC [Concomitant]
  6. IBUPROFEN [Concomitant]
  7. OMEPRAZOLE [Concomitant]
  8. ZORPRIN [Concomitant]
  9. FOLIC ACID [Concomitant]
  10. CELESTONE [Concomitant]
  11. CALCIUM GLUCONATE [Concomitant]
  12. TERAZOSIN HCL [Concomitant]

REACTIONS (1)
  - ARTHRALGIA [None]
